FAERS Safety Report 6052028-6 (Version None)
Quarter: 2009Q1

REPORT INFORMATION
  Report Type: 
  Country: None (occurrence: None)
  Receive Date: 20090121
  Receipt Date: 20080313
  Transmission Date: 20090719
  Serious: Yes (Disabling, Other)
  Sender: FDA-Public Use
  Company Number: HQWYE210217JUL04

PATIENT
  Age: 51 Year
  Sex: Female
  Weight: 61.29 kg

DRUGS (6)
  1. PREMPRO [Suspect]
     Indication: HORMONE REPLACEMENT THERAPY
     Dosage: 2.5 MG, ORAL
     Route: 048
     Dates: start: 19990601, end: 20010401
  2. PREMPRO [Suspect]
     Indication: MOOD SWINGS
     Dosage: 2.5 MG, ORAL
     Route: 048
     Dates: start: 19990601, end: 20010401
  3. MEDROXYPROGESTERONE [Suspect]
     Indication: MENORRHAGIA
     Dosage: 10 MG, ORAL
     Route: 048
     Dates: start: 19941109
  4. PREMARIN [Suspect]
     Indication: MENORRHAGIA
     Dosage: 0.625 MG, ORAL
     Route: 048
     Dates: start: 19941109
  5. DIOVAN [Concomitant]
  6. FUROSEMIDE [Concomitant]

REACTIONS (1)
  - BREAST CANCER [None]
